FAERS Safety Report 19786204 (Version 2)
Quarter: 2021Q3

REPORT INFORMATION
  Report Type: Spontaneous
  Country: US (occurrence: US)
  Receive Date: 20210903
  Receipt Date: 20210903
  Transmission Date: 20211014
  Serious: Yes (Death, Hospitalization, Other)
  Sender: FDA-Public Use
  Company Number: US-CIPLA LTD.-2014US01016

PATIENT

DRUGS (1)
  1. CARBOPLATIN. [Suspect]
     Active Substance: CARBOPLATIN
     Indication: HEPATOBLASTOMA
     Dosage: 350 MILLIGRAM/SQ. METER, SINGLE
     Route: 065

REACTIONS (5)
  - Klebsiella infection [Unknown]
  - Septic shock [Unknown]
  - Sepsis [Fatal]
  - Cardiopulmonary failure [Fatal]
  - Enterobacter infection [Unknown]
